FAERS Safety Report 16902967 (Version 1)
Quarter: 2019Q4

REPORT INFORMATION
  Report Type: Spontaneous
  Country: GB (occurrence: GB)
  Receive Date: 20191010
  Receipt Date: 20191010
  Transmission Date: 20200122
  Serious: Yes (Disabling)
  Sender: FDA-Public Use
  Company Number: GB-ELI_LILLY_AND_COMPANY-GB201909014076

PATIENT
  Age: 48 Year
  Sex: Male
  Weight: 114 kg

DRUGS (17)
  1. DULAGLUTIDE. [Suspect]
     Active Substance: DULAGLUTIDE
     Indication: PRODUCT USED FOR UNKNOWN INDICATION
     Dosage: 1.5 MG, UNKNOWN
     Route: 023
     Dates: start: 20190829
  2. LIXISENATIDE [Concomitant]
     Active Substance: LIXISENATIDE
     Dosage: USE AS DIRECTED
     Dates: start: 20190806, end: 20190903
  3. NAPROXEN. [Concomitant]
     Active Substance: NAPROXEN
     Dosage: WITH BREAKFAST
     Dates: start: 20181119
  4. MACROGOL [Concomitant]
     Active Substance: POLYETHYLENE GLYCOLS
     Indication: CONSTIPATION
     Dosage: HALF, ONE OR TWO SACHETS A DAY
     Dates: start: 20161128
  5. CYCLIZINE [Concomitant]
     Active Substance: CYCLIZINE
     Dosage: UP TO THREE TIMES A DAY
     Dates: start: 20190906
  6. PARACETAMOL [Concomitant]
     Active Substance: ACETAMINOPHEN
     Indication: PAIN
     Dates: start: 20161128
  7. METHYLPHENIDATE. [Concomitant]
     Active Substance: METHYLPHENIDATE
     Dosage: WITH BREAKFAST
     Dates: start: 20170407
  8. BISOPROLOL [Concomitant]
     Active Substance: BISOPROLOL
     Dosage: IN THE MORNING
     Dates: start: 20160321
  9. SILDENAFIL. [Concomitant]
     Active Substance: SILDENAFIL
     Dosage: ONE TO BE TAKEN AS DIRECTED
     Dates: start: 20160321
  10. GABAPENTIN. [Concomitant]
     Active Substance: GABAPENTIN
     Dosage: INCREASE SLOWLY UP TO MAXIMUM OF ONE THREE TIMES
     Dates: start: 20161128
  11. METFORMIN [Concomitant]
     Active Substance: METFORMIN HYDROCHLORIDE
     Dosage: TAKE TWO TABLETS TWICE A DAY
     Dates: start: 20160411
  12. LOPERAMIDE [Concomitant]
     Active Substance: LOPERAMIDE
     Dosage: TAKE TWO NOW THEN ONE
     Dates: start: 20190905
  13. OMEPRAZOLE. [Concomitant]
     Active Substance: OMEPRAZOLE
     Dosage: TO PROTECT STOMACH
     Dates: start: 20161128
  14. SERTRALINE [Concomitant]
     Active Substance: SERTRALINE HYDROCHLORIDE
     Dates: start: 20160321
  15. ATORVASTATIN [Concomitant]
     Active Substance: ATORVASTATIN
     Dates: start: 20160321
  16. LISINOPRIL. [Concomitant]
     Active Substance: LISINOPRIL
     Dosage: IN THE MORNING
     Dates: start: 20160321
  17. PIOGLITAZONE. [Concomitant]
     Active Substance: PIOGLITAZONE
     Dates: start: 20180213

REACTIONS (4)
  - Vomiting [Recovered/Resolved]
  - Anal incontinence [Unknown]
  - Diarrhoea [Recovering/Resolving]
  - Incorrect route of product administration [Unknown]

NARRATIVE: CASE EVENT DATE: 20190904
